FAERS Safety Report 10912980 (Version 1)
Quarter: 2015Q1

REPORT INFORMATION
  Report Type: Spontaneous
  Country: US (occurrence: US)
  Receive Date: 20150313
  Receipt Date: 20150313
  Transmission Date: 20150721
  Serious: No
  Sender: FDA-Public Use
  Company Number: US-009507513-1503USA005619

PATIENT
  Age: 20 Year
  Sex: Female
  Weight: 43.8 kg

DRUGS (2)
  1. VITAMINS (UNSPECIFIED) [Concomitant]
     Active Substance: VITAMINS
  2. NUVARING [Suspect]
     Active Substance: ETHINYL ESTRADIOL\ETONOGESTREL
     Indication: CONTRACEPTION
     Dosage: 1 DF, 3 WEEKS IN AND 1 WEEK OUT
     Route: 067
     Dates: start: 201411

REACTIONS (1)
  - Breast tenderness [Unknown]

NARRATIVE: CASE EVENT DATE: 201411
